FAERS Safety Report 16712437 (Version 1)
Quarter: 2019Q3

REPORT INFORMATION
  Report Type: Report from Study
  Country: US (occurrence: US)
  Receive Date: 20190816
  Receipt Date: 20190816
  Transmission Date: 20191004
  Serious: Yes (Hospitalization)
  Sender: FDA-Public Use
  Company Number: US-CELGENEUS-USA-20190803848

PATIENT
  Age: 67 Year
  Sex: Female

DRUGS (9)
  1. OMNIPAQUE [Concomitant]
     Active Substance: IOHEXOL
     Indication: PRODUCT USED FOR UNKNOWN INDICATION
     Dosage: 350 MILLIGRAM
     Route: 041
     Dates: start: 20190721, end: 20190721
  2. VIDAZA [Suspect]
     Active Substance: AZACITIDINE
     Indication: LUNG ADENOCARCINOMA
     Dosage: 76.5 MILLIGRAM
     Route: 058
     Dates: start: 20190422, end: 20190501
  3. ENTINOSTAT [Suspect]
     Active Substance: ENTINOSTAT
     Indication: LUNG ADENOCARCINOMA
     Dosage: 5 MILLIGRAM
     Route: 048
     Dates: start: 20190424, end: 20190501
  4. OXYCODONE [Concomitant]
     Active Substance: OXYCODONE
     Indication: PAIN
     Dosage: 5 MILLIGRAM
     Route: 048
  5. TORADOL [Concomitant]
     Active Substance: KETOROLAC TROMETHAMINE
     Indication: PAIN
     Dosage: 15 MILLIGRAM
     Route: 041
     Dates: start: 20190521, end: 20190521
  6. CARBOPLATIN. [Concomitant]
     Active Substance: CARBOPLATIN
     Indication: PRODUCT USED FOR UNKNOWN INDICATION
     Route: 065
     Dates: end: 20190716
  7. GABAPENTIN. [Concomitant]
     Active Substance: GABAPENTIN
     Indication: PAIN
     Dosage: 600 MILLIGRAM
     Route: 048
  8. GEMCITABINE. [Concomitant]
     Active Substance: GEMCITABINE
     Indication: PRODUCT USED FOR UNKNOWN INDICATION
     Route: 065
     Dates: end: 20190716
  9. NIVOLUMAB [Suspect]
     Active Substance: NIVOLUMAB
     Indication: LUNG ADENOCARCINOMA
     Dosage: 240 MILLIGRAM
     Route: 041
     Dates: start: 20190422, end: 20190506

REACTIONS (2)
  - Back pain [Recovered/Resolved with Sequelae]
  - Abdominal pain [Recovered/Resolved with Sequelae]

NARRATIVE: CASE EVENT DATE: 20190714
